FAERS Safety Report 9621076 (Version 2)
Quarter: 2013Q4

REPORT INFORMATION
  Report Type: Report from Study
  Country: US (occurrence: US)
  Receive Date: 20131015
  Receipt Date: 20131023
  Transmission Date: 20140711
  Serious: Yes (Death)
  Sender: FDA-Public Use
  Company Number: US-ASTELLAS-2013US010591

PATIENT
  Age: 53 Year
  Sex: Male

DRUGS (5)
  1. ERLOTINIB TABLET [Suspect]
     Indication: PRODUCT USED FOR UNKNOWN INDICATION
     Dosage: 100 MG, UID/QD
     Route: 065
     Dates: start: 201207, end: 20130917
  2. OXYCODONE [Concomitant]
     Indication: PAIN
     Dosage: 5 MG, UNKNOWN/D
     Route: 048
     Dates: start: 201207, end: 20131005
  3. METHADONE                          /00068902/ [Concomitant]
     Indication: PAIN
     Dosage: 5 MG, BID
     Route: 048
     Dates: start: 201207, end: 20131005
  4. MINOCYCLINE [Concomitant]
     Indication: RASH
     Dosage: 100 MG, UID/QD
     Route: 048
  5. LOMOTIL [Concomitant]
     Indication: DIARRHOEA
     Dosage: UNK
     Route: 048
     Dates: start: 201305, end: 201307

REACTIONS (1)
  - Convulsion [Fatal]
